FAERS Safety Report 5803200-9 (Version None)
Quarter: 2008Q3

REPORT INFORMATION
  Report Type: 
  Country: None (occurrence: None)
  Receive Date: 20080708
  Receipt Date: 20080630
  Transmission Date: 20090109
  Serious: Yes (Hospitalization, Other)
  Sender: FDA-Public Use
  Company Number: DE-BRISTOL-MYERS SQUIBB COMPANY-14073316

PATIENT
  Age: 51 Year
  Sex: Female
  Weight: 69 kg

DRUGS (9)
  1. ORENCIA [Suspect]
     Indication: RHEUMATOID ARTHRITIS
     Dosage: IV,750MG,QD,22NOV2007-CONT. IV,750MG,QD,06DEC2007-CONT.
     Route: 042
     Dates: start: 20071122
  2. PREDNI H TABLINEN [Concomitant]
     Dosage: ONCE IN THE MORNING
  3. TILIDINE [Concomitant]
  4. CYMBALTA [Concomitant]
     Dosage: ONCE IN THE MORNING
     Dates: start: 20070901
  5. MIRTAZAPINE [Concomitant]
     Dosage: 1 DOSAGE FORM = 30(UNITS NOT MENTIONED).ONCE IN THE EVENING
  6. OMEPRAZOLE [Concomitant]
     Dosage: 1 DOSAGE FORM = 40(UNITS NOT MENTIONED).ONCE IN THE MORNING
  7. AMLODIPINE [Concomitant]
     Dosage: 1 DOSAGE FORM =5(UNITS NOT MENTIONED).ONCE IN THE MORNING AND ONCE IN THE EVENING
  8. ALENDRONATE SODIUM [Concomitant]
     Dosage: 1 DOSAGE FORM = 70(UNITS NOT MENTIONED).
     Dates: start: 20050101
  9. CALCIUM CARBONATE [Concomitant]

REACTIONS (1)
  - ALVEOLITIS [None]
